FAERS Safety Report 25812171 (Version 1)
Quarter: 2025Q3

REPORT INFORMATION
  Report Type: Report from Study
  Country: GB (occurrence: GB)
  Receive Date: 20250917
  Receipt Date: 20250917
  Transmission Date: 20251021
  Serious: Yes (Other)
  Sender: IPSEN BIOPHARMACEUTICALS, INC.
  Company Number: GB-IPSEN Group, Research and Development-2025-22688

PATIENT
  Sex: Male

DRUGS (1)
  1. LANREOTIDE [Suspect]
     Active Substance: LANREOTIDE
     Indication: Acromegaly

REACTIONS (2)
  - Insulin-like growth factor increased [Not Recovered/Not Resolved]
  - Drug ineffective [Unknown]
